FAERS Safety Report 9052786 (Version 1)
Quarter: 2013Q1

REPORT INFORMATION
  Report Type: Report from Study
  Country: BR (occurrence: BR)
  Receive Date: 20130207
  Receipt Date: 20130207
  Transmission Date: 20140127
  Serious: Yes (Hospitalization, Other)
  Sender: FDA-Public Use
  Company Number: BR-ABBOTT-13P-020-1044704-00

PATIENT
  Sex: Female
  Weight: 39 kg

DRUGS (2)
  1. HUMIRA [Suspect]
     Indication: CROHN^S DISEASE
     Route: 058
     Dates: start: 201208, end: 201209
  2. HUMIRA [Suspect]
     Route: 058
     Dates: start: 20130115

REACTIONS (1)
  - Fistula [Recovered/Resolved]
